FAERS Safety Report 16744687 (Version 1)
Quarter: 2019Q3

REPORT INFORMATION
  Report Type: Spontaneous
  Country: US (occurrence: US)
  Receive Date: 20190827
  Receipt Date: 20190827
  Transmission Date: 20191005
  Serious: Yes (Hospitalization)
  Sender: FDA-Public Use
  Company Number: US-ROCHE-2383556

PATIENT
  Sex: Female

DRUGS (13)
  1. FUROSEMIDE. [Concomitant]
     Active Substance: FUROSEMIDE
  2. LETAIRIS [Concomitant]
     Active Substance: AMBRISENTAN
  3. CEPHALEXIN [CEFALEXIN] [Concomitant]
     Active Substance: CEPHALEXIN
  4. LORAZEPAM. [Concomitant]
     Active Substance: LORAZEPAM
  5. PANTOPRAZOLE [Concomitant]
     Active Substance: PANTOPRAZOLE
  6. TIZANIDINE. [Concomitant]
     Active Substance: TIZANIDINE
  7. MIDODRINE [Concomitant]
     Active Substance: MIDODRINE
  8. METHYLPRED [Concomitant]
     Active Substance: METHYLPREDNISOLONE
  9. LISINOPRIL. [Concomitant]
     Active Substance: LISINOPRIL
  10. SILDENAFIL. [Concomitant]
     Active Substance: SILDENAFIL
  11. ESBRIET [Suspect]
     Active Substance: PIRFENIDONE
     Indication: IDIOPATHIC PULMONARY FIBROSIS
     Route: 048
     Dates: start: 20180112
  12. ESCITALOPRAM [Concomitant]
     Active Substance: ESCITALOPRAM OXALATE
  13. METOPROLOL SUCCINATE. [Concomitant]
     Active Substance: METOPROLOL SUCCINATE

REACTIONS (2)
  - Fracture [Unknown]
  - Fall [Unknown]
